FAERS Safety Report 9029427 (Version 1)
Quarter: 2013Q1

REPORT INFORMATION
  Report Type: Spontaneous
  Country: GB (occurrence: GB)
  Receive Date: 20130125
  Receipt Date: 20130125
  Transmission Date: 20140127
  Serious: Yes (Other)
  Sender: FDA-Public Use
  Company Number: GB-PFIZER INC-2013030227

PATIENT
  Sex: 0

DRUGS (1)
  1. PREGABALIN [Suspect]
     Dosage: UNK

REACTIONS (1)
  - Electrocardiogram QT interval abnormal [Unknown]
